FAERS Safety Report 17153906 (Version 1)
Quarter: 2019Q4

REPORT INFORMATION
  Report Type: Report from Study
  Country: US (occurrence: US)
  Receive Date: 20191213
  Receipt Date: 20191213
  Transmission Date: 20200122
  Serious: No
  Sender: FDA-Public Use
  Company Number: PHHY2018US139420

PATIENT
  Age: 42 Year
  Sex: Male

DRUGS (1)
  1. GILENYA [Suspect]
     Active Substance: FINGOLIMOD HYDROCHLORIDE
     Indication: MULTIPLE SCLEROSIS
     Dosage: QD
     Route: 048

REACTIONS (18)
  - Vitamin D decreased [Unknown]
  - Decreased appetite [Unknown]
  - White blood cell count decreased [Unknown]
  - Upper respiratory tract infection [Recovered/Resolved]
  - Anxiety [Unknown]
  - Muscular weakness [Unknown]
  - Hypoaesthesia [Unknown]
  - Tinea versicolour [Unknown]
  - Dizziness [Unknown]
  - Constipation [Unknown]
  - Pain in extremity [Unknown]
  - Seborrhoeic dermatitis [Unknown]
  - Dyspnoea [Recovered/Resolved]
  - Gait disturbance [Unknown]
  - Temperature intolerance [Unknown]
  - Fatigue [Unknown]
  - Dental caries [Unknown]
  - Diarrhoea [Unknown]

NARRATIVE: CASE EVENT DATE: 20170725
